FAERS Safety Report 4695993-1 (Version None)
Quarter: 2005Q2

REPORT INFORMATION
  Report Type: 
  Country: None (occurrence: None)
  Receive Date: 20050621
  Receipt Date: 20050524
  Transmission Date: 20051028
  Serious: Yes (Other)
  Sender: FDA-Public Use
  Company Number: US-GLAXOSMITHKLINE-A0559938A

PATIENT
  Sex: Female

DRUGS (6)
  1. LAMICTAL [Suspect]
     Indication: FIBROMYALGIA
     Route: 048
  2. TRILEPTAL [Suspect]
     Indication: MIGRAINE PROPHYLAXIS
  3. LIPITOR [Concomitant]
  4. NORFLEX [Concomitant]
  5. BENADRYL [Concomitant]
  6. MULTIPLE MEDICATION [Concomitant]

REACTIONS (8)
  - BLOOD CHOLESTEROL INCREASED [None]
  - BLOOD GLUCOSE INCREASED [None]
  - DRUG INTERACTION [None]
  - DRUG TOXICITY [None]
  - HEPATIC ENZYME INCREASED [None]
  - MIGRAINE [None]
  - RASH [None]
  - WHITE BLOOD CELL COUNT INCREASED [None]
